FAERS Safety Report 8508231-6 (Version None)
Quarter: 2012Q3

REPORT INFORMATION
  Report Type: 
  Country: None (occurrence: None)
  Receive Date: 20120713
  Receipt Date: 20120702
  Transmission Date: 20120928
  Serious: Yes (Other)
  Sender: FDA-Public Use
  Company Number: SE-GENZYME-CAMP-1002305

PATIENT
  Age: 68 Year
  Sex: Female

DRUGS (10)
  1. FLUDARA [Suspect]
     Indication: CHRONIC LYMPHOCYTIC LEUKAEMIA RECURRENT
     Dosage: UNK, 1 COURSE
     Route: 065
  2. FLUDARA [Suspect]
     Dosage: UNK, 2 COURSE
     Route: 065
  3. CYCLOPHOSPHAMIDE [Suspect]
     Indication: CHRONIC LYMPHOCYTIC LEUKAEMIA RECURRENT
     Dosage: UNK, 1 COURSE
     Route: 065
  4. CYCLOPHOSPHAMIDE [Suspect]
     Dosage: UNK, 2ND COURSE
     Route: 065
  5. PREDNISONE [Concomitant]
     Dosage: 10 MG, QD
     Route: 065
  6. PREDNISONE [Concomitant]
     Dosage: 30 MG, UNK
     Route: 065
     Dates: start: 20090101
  7. BENDAMUSTINE HYDROCHLORIDE [Concomitant]
     Indication: CHRONIC LYMPHOCYTIC LEUKAEMIA
     Dosage: UNK
     Route: 065
     Dates: start: 20100301
  8. MABCAMPATH [Suspect]
     Indication: PARANEOPLASTIC PEMPHIGUS
     Dosage: 30 MG, 3X/W
     Route: 058
  9. PREDNISONE [Concomitant]
     Indication: PARANEOPLASTIC PEMPHIGUS
     Dosage: 60 MG, QD
     Route: 065
     Dates: start: 20090101, end: 20090101
  10. RITUXIMAB [Concomitant]
     Indication: CHRONIC LYMPHOCYTIC LEUKAEMIA
     Dosage: UNK
     Route: 065
     Dates: start: 20100301

REACTIONS (6)
  - HERPES ZOSTER [None]
  - FUNGAL INFECTION [None]
  - CYTOMEGALOVIRUS INFECTION [None]
  - PNEUMONIA [None]
  - PARANEOPLASTIC PEMPHIGUS [None]
  - NEUTROPENIA [None]
